FAERS Safety Report 6978637-5 (Version None)
Quarter: 2010Q3

REPORT INFORMATION
  Report Type: 
  Country: None (occurrence: None)
  Receive Date: 20100913
  Receipt Date: 20100901
  Transmission Date: 20110219
  Serious: Yes (Death, Hospitalization)
  Sender: FDA-Public Use
  Company Number: A0806117A

PATIENT
  Age: 62 Year
  Sex: Male
  Weight: 150 kg

DRUGS (9)
  1. AVANDIA [Suspect]
     Dosage: 8MG IN THE MORNING
     Route: 048
  2. SIMVASTATIN [Concomitant]
  3. ACARBOSE [Concomitant]
  4. CLONIDINE [Concomitant]
  5. FELODIPINE [Concomitant]
  6. FUROSEMIDE [Concomitant]
  7. GLIPIZIDE [Concomitant]
  8. HYDRALAZINE [Concomitant]
  9. LOSARTAN POTASSIUM [Concomitant]

REACTIONS (3)
  - CHRONIC OBSTRUCTIVE PULMONARY DISEASE [None]
  - DEATH [None]
  - MYOCARDIAL INFARCTION [None]
